FAERS Safety Report 7931877-0 (Version None)
Quarter: 2011Q4

REPORT INFORMATION
  Report Type: 
  Country: None (occurrence: None)
  Receive Date: 20111121
  Receipt Date: 20111118
  Transmission Date: 20120403
  Serious: Yes (Congenital Anomaly)
  Sender: FDA-Public Use
  Company Number: FR-PFIZER INC-2011282484

PATIENT

DRUGS (3)
  1. XANAX [Suspect]
     Dosage: 1 DF, 2X/DAY
     Route: 064
     Dates: start: 20110802
  2. TERCIAN [Suspect]
     Dosage: 0.5 DF, 1X/DAY
     Route: 064
     Dates: start: 20110802
  3. ZYPREXA [Suspect]
     Dosage: 1 DF, 2X/DAY
     Route: 064
     Dates: start: 20110802

REACTIONS (2)
  - ANENCEPHALY [None]
  - MATERNAL EXPOSURE TIMING UNSPECIFIED [None]
